FAERS Safety Report 15589882 (Version 1)
Quarter: 2018Q4

REPORT INFORMATION
  Report Type: Spontaneous
  Country: NL (occurrence: NL)
  Receive Date: 20181106
  Receipt Date: 20181106
  Transmission Date: 20190205
  Serious: Yes (Other)
  Sender: FDA-Public Use
  Company Number: NL-ACCORD-091212

PATIENT
  Age: 81 Year
  Sex: Male

DRUGS (1)
  1. METHOTREXATE. [Suspect]
     Active Substance: METHOTREXATE
     Indication: RHEUMATOID ARTHRITIS
     Dosage: MONDAY 8 TAB
     Dates: start: 20110628, end: 20111018

REACTIONS (3)
  - Bronchiectasis [Unknown]
  - Lung disorder [Unknown]
  - Infection [Unknown]

NARRATIVE: CASE EVENT DATE: 20111018
